FAERS Safety Report 22059231 (Version 2)
Quarter: 2023Q1

REPORT INFORMATION
  Report Type: Spontaneous
  Country: JP (occurrence: JP)
  Receive Date: 20230303
  Receipt Date: 20230315
  Transmission Date: 20230417
  Serious: Yes (Other)
  Sender: FDA-Public Use
  Company Number: JP-MYLANLABS-2023M1022597

PATIENT
  Age: 5 Decade
  Sex: Female

DRUGS (8)
  1. CARBOPLATIN [Suspect]
     Active Substance: CARBOPLATIN
     Indication: Ovarian cancer stage I
     Dosage: AS PART OF THE TCB REGIMEN, EVERY 3 WEEKS FOR 6 CYCLES
     Route: 065
  2. BEVACIZUMAB [Suspect]
     Active Substance: BEVACIZUMAB
     Indication: Ovarian cancer stage I
     Dosage: AS PART OF THE TCB REGIMEN, EVERY 3 WEEKS FOR 6 CYCLES, FOLLOWED BY MAINTENANCE THERAPY
     Route: 065
  3. PACLITAXEL [Suspect]
     Active Substance: PACLITAXEL
     Indication: Ovarian cancer stage I
     Dosage: AS PART OF THE TCB REGIMEN, EVERY 3 WEEKS FOR 6 CYCLES
     Route: 065
  4. LEUPROLIDE ACETATE [Suspect]
     Active Substance: LEUPROLIDE ACETATE
     Indication: Ovarian cancer stage I
     Route: 065
  5. OLAPARIB [Suspect]
     Active Substance: OLAPARIB
     Indication: Ovarian cancer stage I
     Dosage: UNK
     Route: 065
  6. BLEOMYCIN [Concomitant]
     Active Substance: BLEOMYCIN SULFATE
     Indication: Ovarian cancer stage I
     Dosage: AS PART OF THE BEP REGIMEN, FOR FOUR COURSES
     Route: 065
  7. ETOPOSIDE [Concomitant]
     Active Substance: ETOPOSIDE
     Indication: Ovarian cancer stage I
     Dosage: AS PART OF THE BEP REGIMEN FOR FOUR COURSES, FOLLOWED BY SIX COURSES AS PART OF THE EP REGIMEN
     Route: 065
  8. CISPLATIN [Concomitant]
     Active Substance: CISPLATIN
     Indication: Ovarian cancer stage I
     Dosage: AS PART OF THE BEP REGIMEN FOR FOUR COURSES, FOLLOWED BY SIX COURSES AS PART OF THE EP REGIMEN
     Route: 065

REACTIONS (1)
  - Drug ineffective [Unknown]
